FAERS Safety Report 25755552 (Version 1)
Quarter: 2025Q3

REPORT INFORMATION
  Report Type: Spontaneous
  Country: US (occurrence: US)
  Receive Date: 20250903
  Receipt Date: 20250903
  Transmission Date: 20251020
  Serious: No
  Sender: LUNDBECK
  Company Number: US-LUNDBECK-DKLU4018793

PATIENT
  Age: 21 Year
  Sex: Male

DRUGS (1)
  1. SABRIL [Suspect]
     Active Substance: VIGABATRIN
     Indication: Tuberous sclerosis complex
     Dosage: 1500 MILLIGRAM
     Route: 048
     Dates: start: 202405

REACTIONS (2)
  - Underdose [Unknown]
  - Product physical issue [Unknown]
